FAERS Safety Report 15271914 (Version 1)
Quarter: 2018Q3

REPORT INFORMATION
  Report Type: Report from Study
  Country: BR (occurrence: BR)
  Receive Date: 20180813
  Receipt Date: 20180813
  Transmission Date: 20181010
  Serious: Yes (Other)
  Sender: FDA-Public Use
  Company Number: PHHY2018BR066282

PATIENT
  Age: 73 Year
  Sex: Female
  Weight: 91 kg

DRUGS (4)
  1. AAS [Concomitant]
     Active Substance: ASPIRIN
     Indication: COAGULOPATHY
     Dosage: 100 MG, QD IN THE MORNING
     Route: 048
     Dates: start: 20180717
  2. CLOPIDOGREL [Concomitant]
     Active Substance: CLOPIDOGREL BISULFATE
     Indication: COAGULOPATHY
     Dosage: 75 MG, QD IN THE MORNING
     Route: 048
     Dates: start: 20180717
  3. DIOVAN [Suspect]
     Active Substance: VALSARTAN
     Indication: HYPERTENSION
     Dosage: 320 MG, QD (A TABLET A DAY, IN THE MORNING)
     Route: 048
  4. GALVUS MET [Suspect]
     Active Substance: METFORMIN HYDROCHLORIDE\VILDAGLIPTIN
     Indication: DIABETES MELLITUS
     Dosage: 2 DF  (METFROMIN 1000 MG, VILDAGLIPTIN 50MG), QD
     Route: 048

REACTIONS (5)
  - Overweight [Recovering/Resolving]
  - Myocardial infarction [Unknown]
  - Coronary artery occlusion [Recovering/Resolving]
  - Back pain [Unknown]
  - Eructation [Unknown]

NARRATIVE: CASE EVENT DATE: 20180716
